FAERS Safety Report 10465066 (Version 1)
Quarter: 2014Q3

REPORT INFORMATION
  Report Type: Spontaneous
  Country: BR (occurrence: BR)
  Receive Date: 20140919
  Receipt Date: 20140919
  Transmission Date: 20150326
  Serious: Yes (Other)
  Sender: FDA-Public Use
  Company Number: BR-PFIZER INC-2014255638

PATIENT
  Age: 79 Year
  Sex: Male
  Weight: 61 kg

DRUGS (6)
  1. RIVOTRIL [Concomitant]
     Active Substance: CLONAZEPAM
     Indication: SLEEP DISORDER
     Dosage: 1 TABLET OR CAPSULE - FORMULATION NOT SPECIFIED, DAILY
  2. CALCIUM [Concomitant]
     Active Substance: CALCIUM
     Indication: CALCIUM DEFICIENCY
     Dosage: 1 TABLET OR CAPSULE - FORMULATION NOT SPECIFIED, DAILY
  3. TAMSULOSIN [Concomitant]
     Active Substance: TAMSULOSIN
     Indication: PROSTATIC DISORDER
     Dosage: 1 TABLET OR CAPSULE - FORMULATION NOT SPECIFIED, 2X/DAY
  4. CAPILAREMA [Concomitant]
     Indication: VARICOSE VEIN
     Dosage: 1 TABLET OR CAPSULE - FORMULATION NOT SPECIFIED, DAILY
  5. VENLAXIN [Concomitant]
     Indication: OSTEOARTHRITIS
     Dosage: 1 TABLET OR CAPSULE - FORMULATION NOT SPECIFIED, DAILY
     Dates: start: 201403
  6. LYRICA [Suspect]
     Active Substance: PREGABALIN
     Indication: OSTEOARTHRITIS
     Dosage: 75 MG, 2X/DAY
     Route: 048
     Dates: start: 2007

REACTIONS (1)
  - Cataract [Unknown]

NARRATIVE: CASE EVENT DATE: 201407
